FAERS Safety Report 11980949 (Version 1)
Quarter: 2016Q1

REPORT INFORMATION
  Report Type: Spontaneous
  Country: US (occurrence: US)
  Receive Date: 20160129
  Receipt Date: 20160129
  Transmission Date: 20160526
  Serious: Yes (Hospitalization, Other)
  Sender: FDA-Public Use
  Company Number: US-BRISTOL-MYERS SQUIBB COMPANY-BMS-2016-004292

PATIENT
  Age: 49 Year
  Sex: Male

DRUGS (1)
  1. WARFARIN SODIUM. [Suspect]
     Active Substance: WARFARIN SODIUM
     Indication: RENAL VEIN THROMBOSIS
     Route: 065

REACTIONS (2)
  - Arthritis bacterial [Recovered/Resolved]
  - Haemarthrosis [Recovered/Resolved]
